FAERS Safety Report 14575465 (Version 1)
Quarter: 2018Q1

REPORT INFORMATION
  Report Type: Spontaneous
  Country: US (occurrence: US)
  Receive Date: 20180227
  Receipt Date: 20180227
  Transmission Date: 20180509
  Serious: No
  Sender: FDA-Public Use
  Company Number: US-ROCHE-2004802

PATIENT
  Sex: Female

DRUGS (17)
  1. CEPHALEXIN. [Concomitant]
     Active Substance: CEPHALEXIN
  2. ACETAMINOPHEN/HYDROCODONE [Concomitant]
     Active Substance: ACETAMINOPHEN\HYDROCODONE
  3. AZITHROMYCIN ANHYDROUS. [Concomitant]
     Active Substance: AZITHROMYCIN ANHYDROUS
  4. XOLAIR [Suspect]
     Active Substance: OMALIZUMAB
     Indication: ASTHMA
     Route: 058
  5. ZOLPIDEM TARTRATE. [Concomitant]
     Active Substance: ZOLPIDEM TARTRATE
  6. KLOR-CON M20 [Concomitant]
     Active Substance: POTASSIUM CHLORIDE
  7. BRIMONIDINE TARTRATE. [Concomitant]
     Active Substance: BRIMONIDINE TARTRATE
  8. PREDNISONE. [Concomitant]
     Active Substance: PREDNISONE
  9. DULERA [Concomitant]
     Active Substance: FORMOTEROL FUMARATE DIHYDRATE\MOMETASONE FUROATE
  10. IBUPROFEN. [Concomitant]
     Active Substance: IBUPROFEN
  11. PANTOPRAZOLE SODIUM. [Concomitant]
     Active Substance: PANTOPRAZOLE SODIUM
  12. LEVOFLOXACIN. [Concomitant]
     Active Substance: LEVOFLOXACIN
  13. TRAVATAN Z [Concomitant]
     Active Substance: TRAVOPROST
  14. DICLOFENAC [Concomitant]
     Active Substance: DICLOFENAC
     Route: 065
  15. MELOXICAM. [Concomitant]
     Active Substance: MELOXICAM
     Route: 065
  16. ACETAZOLAMIDE. [Concomitant]
     Active Substance: ACETAZOLAMIDE
  17. FLUCONAZOLE. [Concomitant]
     Active Substance: FLUCONAZOLE

REACTIONS (1)
  - Urticaria [Unknown]
